FAERS Safety Report 10193640 (Version 1)
Quarter: 2014Q2

REPORT INFORMATION
  Report Type: Spontaneous
  Country: US (occurrence: US)
  Receive Date: 20140524
  Receipt Date: 20140524
  Transmission Date: 20141212
  Serious: No
  Sender: FDA-Public Use
  Company Number: US-SA-2013SA131183

PATIENT
  Age: 76 Year
  Sex: Male

DRUGS (4)
  1. LANTUS SOLOSTAR [Suspect]
     Indication: TYPE 2 DIABETES MELLITUS
     Dosage: DOSE:14 UNIT(S)
     Route: 058
     Dates: start: 20131216
  2. SOLOSTAR [Concomitant]
     Indication: TYPE 2 DIABETES MELLITUS
     Dates: start: 20131216
  3. ALL OTHER THERAPEUTIC PRODUCTS [Concomitant]
  4. GLYBURIDE [Concomitant]

REACTIONS (4)
  - Injection site haemorrhage [Unknown]
  - Incorrect route of drug administration [Unknown]
  - Nasopharyngitis [Unknown]
  - Blood glucose increased [Unknown]
